FAERS Safety Report 9243540 (Version 2)
Quarter: 2013Q2

REPORT INFORMATION
  Report Type: Spontaneous
  Country: US (occurrence: None)
  Receive Date: 20121123
  Receipt Date: 20130225
  Transmission Date: 20140414
  Serious: Yes (Other)
  Sender: FDA-Public Use
  Company Number: 359854

PATIENT
  Age: 69 Year
  Sex: Female

DRUGS (1)
  1. VICTOZA [Suspect]
     Indication: TYPE 2 DIABETES MELLITUS
     Route: 058

REACTIONS (6)
  - Asthenia [None]
  - Vision blurred [None]
  - Bowel movement irregularity [None]
  - Abdominal discomfort [None]
  - Nausea [None]
  - Vomiting [None]
